FAERS Safety Report 5570422-4 (Version None)
Quarter: 2007Q4

REPORT INFORMATION
  Report Type: 
  Country: None (occurrence: None)
  Receive Date: 20071221
  Receipt Date: 20071220
  Transmission Date: 20080405
  Serious: Yes (Other)
  Sender: FDA-Public Use
  Company Number: PHHO2007SE05660

PATIENT
  Age: 76 Year
  Sex: Male
  Weight: 74 kg

DRUGS (6)
  1. ZOLEDRONIC ACID [Suspect]
     Indication: OSTEOPOROTIC FRACTURE
     Dosage: DOUBLE-BLIND
     Route: 042
     Dates: start: 20041206, end: 20051202
  2. CALCIUM CARBONATE [Concomitant]
  3. VITAMIN D [Concomitant]
  4. HYDREA [Concomitant]
     Indication: POLYCYTHAEMIA VERA
  5. PERSANTINE [Concomitant]
     Indication: POLYCYTHAEMIA VERA
  6. TROMBYL [Concomitant]
     Indication: POLYCYTHAEMIA VERA

REACTIONS (4)
  - BASAL CELL CARCINOMA [None]
  - SKIN GRAFT [None]
  - SKIN LESION [None]
  - SKIN NEOPLASM EXCISION [None]
